FAERS Safety Report 9863063 (Version 1)
Quarter: 2014Q1

REPORT INFORMATION
  Report Type: Report from Study
  Country: TW (occurrence: TW)
  Receive Date: 20140203
  Receipt Date: 20140203
  Transmission Date: 20141002
  Serious: No
  Sender: FDA-Public Use
  Company Number: PHHY2014TW012464

PATIENT
  Age: 83 Year
  Sex: Male

DRUGS (101)
  1. AMN107 [Suspect]
     Dates: start: 20111216, end: 20111225
  2. AMN107 [Suspect]
     Dates: start: 20120109, end: 20120126
  3. AMN107 [Suspect]
     Dates: start: 20120127, end: 20120711
  4. AMN107 [Suspect]
     Dates: start: 20120712, end: 20120905
  5. AMN107 [Suspect]
     Dates: start: 20120906
  6. KCL [Concomitant]
     Indication: METABOLIC ALKALOSIS
     Dates: start: 20111230, end: 20120103
  7. ACETAMINOPHEN [Concomitant]
     Indication: PYREXIA
     Dates: start: 20111226, end: 20111226
  8. ACETYLSALICYLIC ACID [Concomitant]
     Indication: THROMBOSIS PROPHYLAXIS
     Dates: start: 20111226, end: 20111226
  9. ACETYLSALICYLIC ACID [Concomitant]
     Dates: start: 20120419
  10. ALLOPURINOL [Concomitant]
     Indication: HYPERURICAEMIA
     Dates: start: 20120906
  11. AMLODIPINE [Concomitant]
     Indication: HYPERTENSION
     Dates: start: 20111228, end: 20111228
  12. AMOXICILLIN [Concomitant]
     Indication: PNEUMONIA
     Dates: start: 20111226, end: 20120102
  13. AMOXICILLIN + CLAVULANIC ACID [Concomitant]
     Indication: INFLUENZA
     Dates: start: 20130404, end: 20130407
  14. ASPIRIN [Concomitant]
     Indication: THROMBOSIS PROPHYLAXIS
     Dates: start: 20120108, end: 20120419
  15. ATORVASTATIN [Concomitant]
     Indication: HYPERCHOLESTEROLAEMIA
     Dates: start: 20121129
  16. B.M [Concomitant]
     Indication: INFLUENZA
     Dates: start: 20130404, end: 20130415
  17. B.M [Concomitant]
     Indication: COUGH
     Dates: start: 20120108, end: 20120117
  18. BENZBROMARONE [Concomitant]
     Indication: HYPERURICAEMIA
     Dates: start: 20111226, end: 20111226
  19. BENZONATATE [Concomitant]
     Indication: COUGH
     Dates: start: 20130409, end: 20130502
  20. BROMHEXIN [Concomitant]
     Indication: COUGH
     Dates: start: 20120316, end: 20120809
  21. BROMHEXIN [Concomitant]
     Indication: PHARYNGITIS
     Dates: start: 20120622, end: 20120625
  22. BROMHEXIN [Concomitant]
     Dates: start: 20120712, end: 20120809
  23. BROMHEXIN [Concomitant]
     Dates: start: 20130409, end: 20130502
  24. BROWN MIXTURE                      /01682301/ [Concomitant]
     Indication: PHARYNGITIS
     Dates: start: 20120622, end: 20120625
  25. C.T.M. [Concomitant]
     Indication: URTICARIA
     Dates: start: 20120111, end: 20120126
  26. C.T.M. [Concomitant]
     Indication: RANULA
     Dates: start: 20120615, end: 20120629
  27. C.T.M. [Concomitant]
     Dates: start: 20120615, end: 20120706
  28. C.T.M. [Concomitant]
     Dates: start: 20121127, end: 20121225
  29. C.T.M. [Concomitant]
     Dates: start: 20130718, end: 20130721
  30. CEFTRIAXONE [Concomitant]
     Indication: PNEUMONIA
     Dates: start: 20111225, end: 20111226
  31. CEPHALEXIN [Concomitant]
     Indication: SKIN ULCER
     Dates: start: 20130806, end: 20130820
  32. CETIRIZINE [Concomitant]
     Indication: URTICARIA
     Dosage: UNK
     Dates: start: 20120612, end: 20121101
  33. CETIRIZINE [Concomitant]
     Dosage: UNK
     Dates: start: 20130918, end: 20131016
  34. CHLORHEXIDINE [Concomitant]
     Dates: start: 20120111, end: 20120117
  35. CHLORHEXIDINE [Concomitant]
     Dosage: UNK
     Dates: start: 20120111
  36. CHLORPHENIRAMIN [Concomitant]
     Indication: TRANSFUSION
     Dates: start: 20111226, end: 20111226
  37. CHLORPHENIRAMIN [Concomitant]
     Indication: CATHETERISATION CARDIAC
     Dates: start: 20111227, end: 20111227
  38. CHLORPHENIRAMIN [Concomitant]
     Indication: URTICARIA
     Dates: start: 20111228, end: 20111228
  39. CHLORPHENIRAMIN [Concomitant]
     Indication: RANULA
     Dates: start: 20120110, end: 20120110
  40. CHLORPHENIRAMIN [Concomitant]
     Dates: start: 20120203, end: 20120203
  41. CHLORPHENIRAMIN [Concomitant]
     Dates: start: 20120330, end: 20120330
  42. CHLORPHENIRAMIN [Concomitant]
     Dates: start: 20120518, end: 20120518
  43. CHLORPHENIRAMIN [Concomitant]
     Dates: start: 20130716, end: 20130716
  44. CHLORPHENIRAMIN [Concomitant]
     Dates: start: 20130718, end: 20130718
  45. CHLORPHENIRAMIN [Concomitant]
     Dates: start: 20131016, end: 20131016
  46. CLOBETASOL [Concomitant]
     Indication: ECZEMA
     Dates: start: 20120615, end: 20120629
  47. CLOBETASOL [Concomitant]
     Dates: start: 20120615, end: 20120706
  48. CLOBETASOL [Concomitant]
     Dates: start: 20121127, end: 20121225
  49. CLOPIDOGREL [Concomitant]
     Indication: MYOCARDIAL INFARCTION
     Dates: start: 20111226, end: 20111228
  50. CLOTRIMAZOLE [Concomitant]
     Indication: URTICARIA
     Dates: start: 20120111, end: 20120117
  51. CLOTRIMAZOLE [Concomitant]
     Dates: start: 20120111
  52. DESLORATADINE [Concomitant]
     Indication: URTICARIA
     Dates: start: 20121101, end: 20130503
  53. DICLOFENAC POTASSIUM [Concomitant]
     Indication: PHARYNGITIS
     Dates: start: 20120622, end: 20120625
  54. DIFLUCORTOLONE [Concomitant]
     Indication: ECZEMA
     Dates: start: 20120615
  55. DOXAZOSIN [Concomitant]
     Indication: HYPERTENSION
     Dates: start: 20120419
  56. ENALAPRIL [Concomitant]
     Indication: HYPERTENSION
     Dates: start: 20121226
  57. FEXOFENADINE [Concomitant]
     Indication: URTICARIA
     Dates: start: 20120420
  58. FEXOFENADINE [Concomitant]
     Dates: start: 20120420, end: 20120713
  59. FEXOFENADINE [Concomitant]
     Dates: start: 20130820, end: 20130917
  60. FUROSEMIDE [Concomitant]
     Indication: PLEURAL EFFUSION
     Dates: start: 20111225
  61. FUSIDIC ACID [Concomitant]
     Indication: SKIN ULCER
     Dates: start: 20130806, end: 20130820
  62. HYDROCORTISONE [Concomitant]
     Indication: TRANSFUSION
     Dates: start: 20111227, end: 20111227
  63. HYDROCORTISONE [Concomitant]
     Indication: WHEEZING
     Dates: start: 20111230, end: 20111230
  64. HYDROCORTISONE [Concomitant]
     Indication: RANULA
     Dates: start: 20110203, end: 20110203
  65. HYDROCORTISONE [Concomitant]
     Dates: start: 20120330, end: 20120330
  66. HYDROCORTISONE [Concomitant]
     Dates: start: 20120518, end: 20120518
  67. HYDROCORTISONE [Concomitant]
     Dates: start: 20130718, end: 20130718
  68. HYDROCORTISONE [Concomitant]
     Dates: start: 20131016, end: 20131016
  69. ISOSORBIDE DINITRATE [Concomitant]
     Indication: MYOCARDIAL INFARCTION
     Dates: start: 20111225, end: 20120419
  70. LEVOCETIRIZINE [Concomitant]
     Indication: RANULA
     Dates: start: 20130718, end: 20130721
  71. LORAZEPAM [Concomitant]
     Indication: INSOMNIA
     Dates: start: 20120104, end: 20120105
  72. LORAZEPAM [Concomitant]
     Dates: start: 20120111, end: 20120117
  73. MAGNESIUM OXIDE [Concomitant]
     Indication: CONSTIPATION
     Dates: start: 20111229, end: 20111231
  74. MAGNESIUM OXIDE [Concomitant]
     Dates: start: 20130121, end: 20130218
  75. MEDICON A [Concomitant]
     Indication: INFLUENZA
     Dates: start: 20130408, end: 20130415
  76. METOCLOPRAMIDE [Concomitant]
     Indication: CONSTIPATION
     Dates: start: 20120108, end: 20120128
  77. METOLAZONE [Concomitant]
     Indication: PLEURAL EFFUSION
     Dates: start: 20111226, end: 20111226
  78. MIDAZOLAM [Concomitant]
     Indication: SEDATION
     Dates: start: 20111226, end: 20111226
  79. MIDAZOLAM [Concomitant]
     Dates: start: 20111227, end: 20111228
  80. MORPHINE [Concomitant]
     Indication: PLEURAL EFFUSION
     Dates: start: 20111226, end: 20111226
  81. MOSAPRIDE [Concomitant]
     Indication: CONSTIPATION
     Dates: start: 20130121, end: 20130218
  82. NIFLEC [Concomitant]
     Indication: COLONOSCOPY
     Dates: start: 20121220, end: 20121220
  83. OSELTAMIVIR [Concomitant]
     Indication: INFLUENZA
     Dates: start: 20130404, end: 20130409
  84. CITRATE [Concomitant]
     Indication: METABOLIC ACIDOSIS
     Dates: start: 20111230, end: 20111230
  85. POTASSIUM CHLORIDE [Concomitant]
     Indication: HYPOKALAEMIA
     Dates: start: 20111230, end: 20111230
  86. PREDNISOLONE [Concomitant]
     Indication: RANULA
     Dates: start: 20130718, end: 20130721
  87. RHIN [Concomitant]
     Indication: INFLUENZA
     Dates: start: 20130404, end: 20130415
  88. SENNOSIDE [Concomitant]
     Indication: CONSTIPATION
     Dates: start: 20130503, end: 20130520
  89. SENOKOT                                 /UNK/ [Concomitant]
     Indication: CONSTIPATION
     Dates: start: 20111223, end: 20111230
  90. SENOKOT                                 /UNK/ [Concomitant]
     Dates: start: 20111229, end: 20111231
  91. SENOKOT                                 /UNK/ [Concomitant]
     Dates: start: 20120111, end: 20120128
  92. SENOKOT                                 /UNK/ [Concomitant]
     Dates: start: 20120906, end: 20121004
  93. SENOKOT                                 /UNK/ [Concomitant]
     Dates: start: 20121214, end: 20130208
  94. PHOSPHATE ENEMA [Concomitant]
     Indication: CONSTIPATION
     Dates: start: 20120109, end: 20120109
  95. SPIRONOLACTONE [Concomitant]
     Indication: PLEURAL EFFUSION
     Dates: start: 20111231, end: 20120101
  96. TAMSULOSIN [Concomitant]
     Indication: BENIGN PROSTATIC HYPERPLASIA
     Dates: start: 20121130, end: 20130503
  97. TAMSULOSIN HYDROCHLORIDE [Concomitant]
     Indication: BENIGN PROSTATIC HYPERPLASIA
     Dates: start: 20120118, end: 20120419
  98. TRIAMCINOLONE [Concomitant]
     Indication: RANULA
     Dates: start: 20130716, end: 20130729
  99. COMBIVENT UDV [Concomitant]
     Indication: WHEEZING
     Dates: start: 20111226, end: 20111226
  100. UREA [Concomitant]
     Indication: ECZEMA
     Dates: start: 20120615, end: 20120629
  101. UREA [Concomitant]
     Dates: start: 20120615, end: 20120706

REACTIONS (1)
  - Hypercholesterolaemia [Unknown]
